FAERS Safety Report 18199272 (Version 2)
Quarter: 2021Q4

REPORT INFORMATION
  Report Type: Spontaneous
  Country: CA (occurrence: CA)
  Receive Date: 20200826
  Receipt Date: 20211206
  Transmission Date: 20220303
  Serious: Yes (Hospitalization)
  Sender: FDA-Public Use
  Company Number: CA-ALLERGAN-2031852US

PATIENT
  Sex: Male
  Weight: 88 kg

DRUGS (7)
  1. ESCITALOPRAM OXALATE [Suspect]
     Active Substance: ESCITALOPRAM OXALATE
     Indication: Obsessive-compulsive disorder
     Dosage: 20 MG, QD
     Route: 048
  2. ESCITALOPRAM OXALATE [Suspect]
     Active Substance: ESCITALOPRAM OXALATE
     Indication: Depression
     Dosage: 10 MG, QD
     Route: 048
  3. ESCITALOPRAM OXALATE [Suspect]
     Active Substance: ESCITALOPRAM OXALATE
     Dosage: 30 MG
     Route: 048
  4. ESCITALOPRAM OXALATE [Suspect]
     Active Substance: ESCITALOPRAM OXALATE
     Dosage: UNK
     Route: 065
  5. ABILIFY [Suspect]
     Active Substance: ARIPIPRAZOLE
     Indication: Affective disorder
     Dosage: 30 MG, QD
     Route: 065
  6. LITHIUM [Concomitant]
     Active Substance: LITHIUM
     Dosage: 1200 MG, QD
     Route: 048
  7. QUETIAPINE [Concomitant]
     Active Substance: QUETIAPINE
     Dosage: 100 MG, QD
     Route: 048

REACTIONS (5)
  - Euphoric mood [Not Recovered/Not Resolved]
  - Flight of ideas [Not Recovered/Not Resolved]
  - Logorrhoea [Not Recovered/Not Resolved]
  - Mania [Not Recovered/Not Resolved]
  - Off label use [Unknown]
